FAERS Safety Report 5200299-8 (Version None)
Quarter: 2006Q4

REPORT INFORMATION
  Report Type: 
  Country: None (occurrence: None)
  Receive Date: 20061016
  Receipt Date: 20060814
  Transmission Date: 20070319
  Serious: No
  Sender: FDA-Public Use
  Company Number: 2006SP002995

PATIENT
  Age: 54 Year
  Sex: Male
  Weight: 68.0396 kg

DRUGS (5)
  1. LUNESTA [Suspect]
     Indication: INSOMNIA
     Dosage: 2 MG;HS;ORAL
     Route: 048
     Dates: start: 20060801
  2. ATORVASTATIN CALCIUM [Concomitant]
  3. ASTELIN [Concomitant]
  4. DIGOXIN [Concomitant]
  5. NEURONTIN [Concomitant]

REACTIONS (1)
  - MIDDLE INSOMNIA [None]
